FAERS Safety Report 25309620 (Version 1)
Quarter: 2025Q2

REPORT INFORMATION
  Report Type: Spontaneous
  Country: JP (occurrence: JP)
  Receive Date: 20250513
  Receipt Date: 20250513
  Transmission Date: 20250717
  Serious: Yes (Death, Other)
  Sender: BAXTER
  Company Number: JP-BAXTER-2025BAX014658

PATIENT
  Age: 42 Year
  Sex: Male

DRUGS (6)
  1. SUPRANE [Suspect]
     Active Substance: DESFLURANE
     Indication: Maintenance of anaesthesia
     Route: 050
     Dates: start: 20231103, end: 20231103
  2. FENTANYL [Suspect]
     Active Substance: FENTANYL
     Indication: Analgesic therapy
     Route: 065
     Dates: start: 20231103, end: 20231103
  3. EPHEDRINE HYDROCHLORIDE [Suspect]
     Active Substance: EPHEDRINE HYDROCHLORIDE
     Indication: Blood pressure management
     Route: 065
     Dates: start: 20231103, end: 20231103
  4. ROCURONIUM [Suspect]
     Active Substance: ROCURONIUM BROMIDE
     Indication: Muscle relaxant therapy
     Route: 065
     Dates: start: 20231103, end: 20231103
  5. LEVOBUPIVACAINE HYDROCHLORIDE [Suspect]
     Active Substance: LEVOBUPIVACAINE HYDROCHLORIDE
     Indication: Analgesic therapy
     Route: 065
     Dates: start: 20231103, end: 20231103
  6. REMIFENTANIL [Suspect]
     Active Substance: REMIFENTANIL
     Indication: Analgesic therapy
     Route: 065
     Dates: start: 20231103, end: 20231103

REACTIONS (5)
  - Hyperthermia malignant [Fatal]
  - Multiple organ dysfunction syndrome [Unknown]
  - Disseminated intravascular coagulation [Unknown]
  - Acute kidney injury [Unknown]
  - Rhabdomyolysis [Unknown]

NARRATIVE: CASE EVENT DATE: 20231103
